FAERS Safety Report 8613109-3 (Version None)
Quarter: 2012Q3

REPORT INFORMATION
  Report Type: 
  Country: None (occurrence: None)
  Receive Date: 20120822
  Receipt Date: 20120713
  Transmission Date: 20120928
  Serious: No
  Sender: FDA-Public Use
  Company Number: US-009507513-2012SP036484

PATIENT

DRUGS (1)
  1. CLARITIN [Suspect]
     Indication: SEASONAL ALLERGY
     Dosage: UNK, ONCE
     Route: 048
     Dates: start: 20120518, end: 20120518

REACTIONS (1)
  - DYSGEUSIA [None]
